FAERS Safety Report 9800042 (Version 2)
Quarter: 2015Q3

REPORT INFORMATION
  Report Type: Spontaneous
  Country: US (occurrence: US)
  Receive Date: 20140106
  Receipt Date: 20150806
  Transmission Date: 20151125
  Serious: No
  Sender: FDA-Public Use
  Company Number: US-GILEAD-2010-0032081

PATIENT
  Age: 54 Year
  Sex: Female
  Weight: 106 kg

DRUGS (20)
  1. LETAIRIS [Suspect]
     Active Substance: AMBRISENTAN
     Indication: PULMONARY ARTERIAL HYPERTENSION
     Route: 048
     Dates: start: 20081213, end: 20100915
  2. VYTORIN [Concomitant]
     Active Substance: EZETIMIBE\SIMVASTATIN
  3. PROTONIX [Concomitant]
     Active Substance: PANTOPRAZOLE SODIUM
  4. LORAZEPAM. [Concomitant]
     Active Substance: LORAZEPAM
  5. LETAIRIS [Suspect]
     Active Substance: AMBRISENTAN
     Route: 048
     Dates: start: 20081111, end: 20081213
  6. ZAROXOLYN [Concomitant]
     Active Substance: METOLAZONE
  7. METHADONE [Concomitant]
     Active Substance: METHADONE HYDROCHLORIDE
  8. NIFEREX [Suspect]
     Active Substance: IRON\POLYSACCHARIDES
  9. LASIX [Concomitant]
     Active Substance: FUROSEMIDE
  10. SYMBICORT [Concomitant]
     Active Substance: BUDESONIDE\FORMOTEROL FUMARATE DIHYDRATE
  11. DUONEB [Concomitant]
     Active Substance: ALBUTEROL SULFATE\IPRATROPIUM BROMIDE
  12. LETAIRIS [Suspect]
     Active Substance: AMBRISENTAN
     Route: 048
     Dates: start: 20080521, end: 20080923
  13. TRACLEER [Concomitant]
     Active Substance: BOSENTAN
     Indication: PULMONARY ARTERIAL HYPERTENSION
     Dates: start: 20080923, end: 20081111
  14. AMERGE [Concomitant]
     Active Substance: NARATRIPTAN HYDROCHLORIDE
  15. LYRICA [Concomitant]
     Active Substance: PREGABALIN
  16. ALBUTEROL. [Concomitant]
     Active Substance: ALBUTEROL
  17. CARAFATE [Concomitant]
     Active Substance: SUCRALFATE
  18. LETAIRIS [Suspect]
     Active Substance: AMBRISENTAN
     Route: 048
     Dates: start: 20071016, end: 20080521
  19. POTASSIUM [Concomitant]
     Active Substance: POTASSIUM
  20. DETROL [Concomitant]
     Active Substance: TOLTERODINE TARTRATE

REACTIONS (4)
  - Hyperhidrosis [Recovering/Resolving]
  - Pruritus [Recovering/Resolving]
  - Headache [Recovering/Resolving]
  - Chills [Recovering/Resolving]
